FAERS Safety Report 5747728-9 (Version None)
Quarter: 2008Q2

REPORT INFORMATION
  Report Type: 
  Country: None (occurrence: None)
  Receive Date: 20080523
  Receipt Date: 20070718
  Transmission Date: 20081010
  Serious: No
  Sender: FDA-Public Use
  Company Number: US-BAYER-200712343BWH

PATIENT
  Age: 53 Year
  Sex: Female

DRUGS (1)
  1. PRECOSE [Suspect]
     Indication: DIABETES MELLITUS
     Dosage: TOTAL DAILY DOSE: 25 MG
     Dates: start: 20070601

REACTIONS (3)
  - ABDOMINAL DISTENSION [None]
  - FLATULENCE [None]
  - WEIGHT DECREASED [None]
